FAERS Safety Report 4764631-1 (Version None)
Quarter: 2005Q3

REPORT INFORMATION
  Report Type: 
  Country: None (occurrence: None)
  Receive Date: 20050909
  Receipt Date: 20050901
  Transmission Date: 20060218
  Serious: Yes (Other)
  Sender: FDA-Public Use
  Company Number: BR-GLAXOSMITHKLINE-A0573145A

PATIENT
  Age: 1 Year
  Sex: Male
  Weight: 10 kg

DRUGS (2)
  1. FLIXONASE [Suspect]
     Indication: RHINITIS
     Dosage: 50MCG SINGLE DOSE
     Route: 045
     Dates: start: 20050831, end: 20050831
  2. NO CONCURRENT MEDICATION [Concomitant]

REACTIONS (1)
  - CHOKING [None]
